FAERS Safety Report 10264875 (Version 1)
Quarter: 2014Q2

REPORT INFORMATION
  Report Type: Report from Study
  Country: CA (occurrence: CA)
  Receive Date: 20140627
  Receipt Date: 20140627
  Transmission Date: 20141212
  Serious: Yes (Other)
  Sender: FDA-Public Use
  Company Number: CA-JNJFOC-20140613378

PATIENT
  Age: 55 Year
  Sex: Female
  Weight: 75.7 kg

DRUGS (8)
  1. REMICADE [Suspect]
     Indication: CROHN^S DISEASE
     Route: 042
     Dates: start: 20130603
  2. PREDNISONE [Concomitant]
     Route: 048
  3. HCTZ [Concomitant]
     Route: 048
  4. VENTOLIN [Concomitant]
     Route: 065
  5. RAMIPRIL [Concomitant]
     Route: 065
  6. CHOLESTYRAMINE [Concomitant]
     Route: 065
  7. ACLASTA [Concomitant]
     Route: 065
  8. OMNARIS [Concomitant]
     Route: 065

REACTIONS (1)
  - Arthritis [Not Recovered/Not Resolved]
